FAERS Safety Report 13615598 (Version 2)
Quarter: 2017Q4

REPORT INFORMATION
  Report Type: Spontaneous
  Country: US (occurrence: US)
  Receive Date: 20170606
  Receipt Date: 20171005
  Transmission Date: 20180320
  Serious: No
  Sender: FDA-Public Use
  Company Number: US-PFIZER INC-2017246186

PATIENT
  Age: 68 Year
  Sex: Male
  Weight: 90.72 kg

DRUGS (1)
  1. GABAPENTIN. [Suspect]
     Active Substance: GABAPENTIN
     Indication: NEUROPATHY PERIPHERAL
     Dosage: UNK, 2X/DAY
     Route: 048
     Dates: end: 201704

REACTIONS (2)
  - Pain in extremity [Unknown]
  - Drug ineffective for unapproved indication [Unknown]
